FAERS Safety Report 16815181 (Version 1)
Quarter: 2019Q4

REPORT INFORMATION
  Report Type: Spontaneous
  Country: US (occurrence: US)
  Receive Date: 20190916
  Receipt Date: 20190916
  Transmission Date: 20200122
  Serious: Yes (Life-Threatening, Disabling)
  Sender: FDA-Public Use
  Company Number: None

PATIENT
  Age: 25 Year
  Sex: Male
  Weight: 78.75 kg

DRUGS (1)
  1. FINASTERIDE. [Suspect]
     Active Substance: FINASTERIDE
     Indication: ALOPECIA
     Dosage: ?          QUANTITY:30 TABLET(S);?
     Route: 048

REACTIONS (4)
  - Feeling abnormal [None]
  - Depression [None]
  - Anxiety [None]
  - Sexual dysfunction [None]

NARRATIVE: CASE EVENT DATE: 20190714
